FAERS Safety Report 18077770 (Version 1)
Quarter: 2020Q3

REPORT INFORMATION
  Report Type: Spontaneous
  Country: US (occurrence: US)
  Receive Date: 20200727
  Receipt Date: 20200727
  Transmission Date: 20201103
  Serious: Yes (Hospitalization)
  Sender: FDA-Public Use
  Company Number: None

PATIENT
  Age: 28 Year
  Sex: Female

DRUGS (1)
  1. HUMIRA [Suspect]
     Active Substance: ADALIMUMAB
     Indication: CROHN^S DISEASE
     Dosage: 1 PEN;?
     Route: 058
     Dates: start: 20180607

REACTIONS (2)
  - Maternal exposure timing unspecified [None]
  - Maternal drugs affecting foetus [None]

NARRATIVE: CASE EVENT DATE: 20200725
